FAERS Safety Report 8277372 (Version 2)
Quarter: 2012Q4

REPORT INFORMATION
  Report Type: Spontaneous
  Country: None (occurrence: None)
  Receive Date: 20111201
  Receipt Date: 20120905
  Transmission Date: 20130627
  Serious: Yes (Other)
  Sender: FDA-Public Use
  Company Number: AUR-APL-2011-05938

PATIENT
  Age: 38 Year
  Sex: Female
  Weight: 42 kg

DRUGS (11)
  1. FLUOXETINE [Suspect]
     Indication: PRODUCT USED FOR UNKNOWN INDICATION
     Dates: start: 20101018, end: 20110831
  2. TOPAMAX [Suspect]
     Indication: EPILEPSY
     Route: 048
     Dates: start: 20070703
  3. TOPAMAX [Suspect]
     Indication: EPILEPSY
     Dosage: (100 mg,2 in 1 d)
     Route: 048
     Dates: start: 20100915, end: 20100915
  4. TOPAMAX [Suspect]
     Indication: EPILEPSY
     Dosage: (100 mg,2 in 1 d)
     Route: 048
     Dates: start: 20101025
  5. TOPAMAX [Suspect]
     Indication: EPILEPSY
     Route: 048
     Dates: start: 20110830, end: 20110830
  6. TOPAMAX [Suspect]
     Indication: EPILEPSY
     Route: 048
     Dates: start: 20091130, end: 20100623
  7. CLONAZEPAM (CLONAZEPAM) (CLONAZEPAM) [Suspect]
     Indication: DRUG USE FOR UNKNOWN INDICATION
  8. ANTIDEPRESSANTS NOS (ANTIDEPRESSANTS) [Concomitant]
  9. FOLIC ACID (FOLIC ACID) [Concomitant]
  10. KEPPRA (LEVETIRACETAM) [Concomitant]
  11. RIVOTIL (CLONAZEPAM) [Concomitant]

REACTIONS (14)
  - Tooth loss [None]
  - Diarrhoea [None]
  - Abdominal pain upper [None]
  - Depression [None]
  - Weight decreased [None]
  - Emotional poverty [None]
  - Palpitations [None]
  - Electric shock [None]
  - Somnolence [None]
  - Gingival bleeding [None]
  - Nerve injury [None]
  - Irritable bowel syndrome [None]
  - Feeling abnormal [None]
  - Mood swings [None]
